FAERS Safety Report 8987426 (Version 3)
Quarter: 2013Q1

REPORT INFORMATION
  Report Type: Report from Study
  Country: US (occurrence: US)
  Receive Date: 20121227
  Receipt Date: 20130220
  Transmission Date: 20140127
  Serious: Yes (Other)
  Sender: FDA-Public Use
  Company Number: US-ROCHE-1132935

PATIENT
  Age: 68 Year
  Sex: Male
  Weight: 79.9 kg

DRUGS (3)
  1. VEMURAFENIB [Suspect]
     Indication: METASTATIC MALIGNANT MELANOMA
     Route: 048
     Dates: start: 20120305, end: 20120402
  2. VEMURAFENIB [Suspect]
     Route: 048
     Dates: start: 20120416, end: 20120430
  3. VEMURAFENIB [Suspect]
     Route: 030
     Dates: start: 20120514

REACTIONS (18)
  - Rash [Recovered/Resolved]
  - Weight decreased [Recovered/Resolved]
  - Dysgeusia [Recovered/Resolved]
  - Asthenia [Not Recovered/Not Resolved]
  - Decreased appetite [Recovered/Resolved]
  - Hepatic enzyme increased [Recovered/Resolved]
  - Photosensitivity reaction [Unknown]
  - Sunburn [Recovered/Resolved]
  - Acne [Recovered/Resolved]
  - Blister [Recovered/Resolved]
  - Squamous cell carcinoma of skin [Recovering/Resolving]
  - Squamous cell carcinoma of skin [Recovering/Resolving]
  - Squamous cell carcinoma of skin [Recovering/Resolving]
  - Malignant tumour excision [Recovered/Resolved]
  - Squamous cell carcinoma of skin [Recovered/Resolved]
  - Photosensitivity reaction [Recovering/Resolving]
  - Sunburn [Unknown]
  - Blister [Unknown]
